FAERS Safety Report 26009102 (Version 1)
Quarter: 2025Q4

REPORT INFORMATION
  Report Type: Spontaneous
  Country: EU (occurrence: EU)
  Receive Date: 20251107
  Receipt Date: 20251107
  Transmission Date: 20260117
  Serious: Yes (Death)
  Sender: ACCORD
  Company Number: None

PATIENT
  Age: 73 Year
  Sex: Female
  Weight: 81 kg

DRUGS (10)
  1. AZACITIDINE [Suspect]
     Active Substance: AZACITIDINE
     Indication: Acute myeloid leukaemia
     Dates: start: 20250630, end: 20250705
  2. VENETOCLAX [Suspect]
     Active Substance: VENETOCLAX
     Indication: Acute myeloid leukaemia
     Dosage: STRENGTH: 100 MG
     Dates: start: 20250630, end: 20250706
  3. GILTERITINIB [Suspect]
     Active Substance: GILTERITINIB
     Indication: Acute myeloid leukaemia
     Dosage: STRENGTH: 40 MG
     Dates: start: 20250701, end: 20250729
  4. BISOPROLOL FUMARATE [Concomitant]
     Active Substance: BISOPROLOL FUMARATE
  5. HYDROCORTISONE [Concomitant]
     Active Substance: HYDROCORTISONE
  6. ALLOPURINOL [Concomitant]
     Active Substance: ALLOPURINOL
  7. LANSOPRAZOLE [Concomitant]
     Active Substance: LANSOPRAZOLE
  8. LEVOTHYROXINE [Concomitant]
     Active Substance: LEVOTHYROXINE
  9. ZOPICLONE [Concomitant]
     Active Substance: ZOPICLONE
  10. GABAPENTIN [Concomitant]
     Active Substance: GABAPENTIN

REACTIONS (1)
  - Febrile bone marrow aplasia [Fatal]

NARRATIVE: CASE EVENT DATE: 20250725
